FAERS Safety Report 4934151-X (Version None)
Quarter: 2006Q1

REPORT INFORMATION
  Report Type: 
  Country: None (occurrence: None)
  Receive Date: 20060301
  Receipt Date: 20060216
  Transmission Date: 20060701
  Serious: Yes (Hospitalization)
  Sender: FDA-Public Use
  Company Number: CERZ-11137

PATIENT
  Age: 17 Year
  Sex: Male
  Weight: 61.6 kg

DRUGS (3)
  1. CEREZYME [Suspect]
     Indication: GAUCHER'S DISEASE
     Dosage: 3600 UNITS Q2WKS, IV
     Route: 042
     Dates: start: 20031007
  2. NORVASC [Concomitant]
  3. LISINOPRIL [Concomitant]

REACTIONS (1)
  - INFLUENZA [None]
